FAERS Safety Report 23371744 (Version 1)
Quarter: 2024Q1

REPORT INFORMATION
  Report Type: Spontaneous
  Country: US (occurrence: None)
  Receive Date: 20240105
  Receipt Date: 20240105
  Transmission Date: 20240409
  Serious: Yes (Death)
  Sender: FDA-Public Use
  Company Number: None

PATIENT
  Age: 65 Year
  Sex: Female

DRUGS (1)
  1. STIVARGA [Suspect]
     Active Substance: REGORAFENIB
     Indication: Colon cancer
     Dosage: OTHER FREQUENCY : QD FOR 1 D OF 28D;?
     Route: 048
     Dates: start: 202309

REACTIONS (1)
  - Death [None]

NARRATIVE: CASE EVENT DATE: 20240101
